FAERS Safety Report 9267793 (Version 1)
Quarter: 2013Q2

REPORT INFORMATION
  Report Type: Report from Study
  Country: US (occurrence: US)
  Receive Date: 20130502
  Receipt Date: 20130502
  Transmission Date: 20140414
  Serious: Yes (Other)
  Sender: FDA-Public Use
  Company Number: PHEH2013US009721

PATIENT
  Age: 29 Year
  Sex: Female

DRUGS (3)
  1. TEGRETOL-XR [Suspect]
     Indication: EPILEPSY
     Dosage: 1200 MG, UNK
     Dates: end: 20120125
  2. TEGRETOL-XR [Suspect]
     Dosage: 1400 MG, UNK
     Dates: start: 20120125
  3. RANTIDINE [Concomitant]
     Indication: GASTROOESOPHAGEAL REFLUX DISEASE
     Dosage: 300 MG, UNK

REACTIONS (3)
  - Pre-eclampsia [Unknown]
  - Failed induction of labour [Unknown]
  - Exposure during pregnancy [Unknown]
